FAERS Safety Report 15387583 (Version 1)
Quarter: 2018Q3

REPORT INFORMATION
  Report Type: Other
  Country: IN (occurrence: IN)
  Receive Date: 20180914
  Receipt Date: 20180914
  Transmission Date: 20181010
  Serious: Yes (Other)
  Sender: FDA-Public Use
  Company Number: IN-B. BRAUN MEDICAL INC.-2054957

PATIENT
  Age: 14 Year
  Sex: Male
  Weight: 56 kg

DRUGS (6)
  1. MIDAZOLAM [Concomitant]
     Active Substance: MIDAZOLAM HYDROCHLORIDE
  2. ATRACURIUM BESYLATE. [Concomitant]
     Active Substance: ATRACURIUM BESYLATE
     Route: 042
  3. THIOPENTONE SODIUM [Concomitant]
     Active Substance: THIOPENTAL SODIUM
     Route: 042
  4. FENTANYL. [Concomitant]
     Active Substance: FENTANYL
     Route: 042
  5. LIDOCAINE HYDROCHLORIDE AND DEXTROSE [Suspect]
     Active Substance: DEXTROSE\LIDOCAINE HYDROCHLORIDE
  6. ISOFLURANE. [Concomitant]
     Active Substance: ISOFLURANE

REACTIONS (2)
  - Ventricular extrasystoles [None]
  - Ventricular arrhythmia [None]
